FAERS Safety Report 8015867-8 (Version None)
Quarter: 2011Q4

REPORT INFORMATION
  Report Type: 
  Country: None (occurrence: None)
  Receive Date: 20111230
  Receipt Date: 20111219
  Transmission Date: 20120403
  Serious: Yes (Other)
  Sender: FDA-Public Use
  Company Number: US-ROCHE-783924

PATIENT
  Sex: Female
  Weight: 63.106 kg

DRUGS (2)
  1. ORTHO TRI-CYCLEN [Concomitant]
  2. ACCUTANE [Suspect]
     Indication: ACNE
     Route: 048
     Dates: start: 19940221, end: 19950801

REACTIONS (5)
  - CROHN'S DISEASE [None]
  - IRRITABLE BOWEL SYNDROME [None]
  - INTESTINAL OBSTRUCTION [None]
  - STRESS [None]
  - INFLAMMATORY BOWEL DISEASE [None]
